FAERS Safety Report 17248602 (Version 2)
Quarter: 2020Q1

REPORT INFORMATION
  Report Type: Spontaneous
  Country: CA (occurrence: CA)
  Receive Date: 20200108
  Receipt Date: 20200204
  Transmission Date: 20200409
  Serious: Yes (Hospitalization)
  Sender: FDA-Public Use
  Company Number: CA-VERTEX PHARMACEUTICALS-2020-000007

PATIENT
  Age: 34 Year
  Sex: Female

DRUGS (6)
  1. HYPERSAL [Concomitant]
     Active Substance: SODIUM CHLORIDE
  2. AZITHROMYCIN ANHYDROUS. [Concomitant]
     Active Substance: AZITHROMYCIN ANHYDROUS
     Route: 048
  3. CREON [Concomitant]
     Active Substance: PANCRELIPASE AMYLASE\PANCRELIPASE LIPASE\PANCRELIPASE PROTEASE
  4. VENTOLIN [Concomitant]
     Active Substance: ALBUTEROL SULFATE
  5. ORKAMBI [Suspect]
     Active Substance: IVACAFTOR\LUMACAFTOR
     Indication: CYSTIC FIBROSIS
     Dosage: (200MG LUMACAFTOR/125MG IVACAFTOR) 2 TABS
     Route: 048
     Dates: start: 20190125, end: 20191213
  6. TOBI [Concomitant]
     Active Substance: TOBRAMYCIN

REACTIONS (1)
  - Infective pulmonary exacerbation of cystic fibrosis [Recovered/Resolved]

NARRATIVE: CASE EVENT DATE: 20191107
